FAERS Safety Report 5190034-4 (Version None)
Quarter: 2006Q4

REPORT INFORMATION
  Report Type: 
  Country: None (occurrence: None)
  Receive Date: 20061215
  Receipt Date: 20061204
  Transmission Date: 20070319
  Serious: Yes (Other)
  Sender: FDA-Public Use
  Company Number: 2006SP000441

PATIENT
  Age: 30 Year
  Sex: Male

DRUGS (2)
  1. PEG-INTRON [Suspect]
     Indication: HEPATITIS C
     Dosage: 100 MCG; QW; SC
     Route: 058
     Dates: start: 20051101
  2. REBETOL [Suspect]
     Indication: HEPATITIS C
     Dosage: 400 MG; QD; PO
     Route: 048
     Dates: start: 20051101

REACTIONS (2)
  - ANHIDROSIS [None]
  - MELAENA [None]
